FAERS Safety Report 6720355-2 (Version None)
Quarter: 2010Q2

REPORT INFORMATION
  Report Type: 
  Country: None (occurrence: None)
  Receive Date: 20100511
  Receipt Date: 20100429
  Transmission Date: 20101027
  Serious: Yes (Death, Other)
  Sender: FDA-Public Use
  Company Number: IN-PFIZER INC-2010054562

PATIENT

DRUGS (1)
  1. CYKLOKAPRON [Suspect]
     Indication: PROPHYLAXIS
     Dosage: 500 MG, UNK
     Route: 042

REACTIONS (3)
  - ABDOMINAL PAIN [None]
  - GANGRENE [None]
  - MESENTERIC OCCLUSION [None]
